FAERS Safety Report 13686725 (Version 2)
Quarter: 2017Q3

REPORT INFORMATION
  Report Type: Spontaneous
  Country: US (occurrence: US)
  Receive Date: 20170623
  Receipt Date: 20170724
  Transmission Date: 20171127
  Serious: Yes (Hospitalization)
  Sender: FDA-Public Use
  Company Number: US-JNJFOC-20170621991

PATIENT
  Age: 72 Year
  Sex: Male

DRUGS (12)
  1. METOPROLOL TARTRATE. [Concomitant]
     Active Substance: METOPROLOL TARTRATE
  2. PREDNISONE. [Concomitant]
     Active Substance: PREDNISONE
  3. ASPIRIN. [Concomitant]
     Active Substance: ASPIRIN
  4. NOVOLOG [Concomitant]
     Active Substance: INSULIN ASPART
  5. ZOCOR [Concomitant]
     Active Substance: SIMVASTATIN
  6. ZYLOPRIM [Concomitant]
     Active Substance: ALLOPURINOL
  7. LOSARTAN. [Concomitant]
     Active Substance: LOSARTAN
  8. XALATAN [Concomitant]
     Active Substance: LATANOPROST
  9. LANTUS [Concomitant]
     Active Substance: INSULIN GLARGINE
  10. FOLIC ACID. [Concomitant]
     Active Substance: FOLIC ACID
  11. IMBRUVICA [Suspect]
     Active Substance: IBRUTINIB
     Indication: PRODUCT USED FOR UNKNOWN INDICATION
     Dosage: 560 MG, QD
     Route: 048
     Dates: start: 20170406, end: 20170616
  12. IBUPROFEN. [Concomitant]
     Active Substance: IBUPROFEN

REACTIONS (2)
  - Abscess [Unknown]
  - Drug dose omission [Unknown]

NARRATIVE: CASE EVENT DATE: 2017
